FAERS Safety Report 4851715-2 (Version None)
Quarter: 2005Q4

REPORT INFORMATION
  Report Type: 
  Country: None (occurrence: None)
  Receive Date: 20051213
  Receipt Date: 20051122
  Transmission Date: 20060501
  Serious: Yes (Hospitalization, Other)
  Sender: FDA-Public Use
  Company Number: PHRM2005FR03015

PATIENT
  Age: 64 Year
  Sex: Female

DRUGS (3)
  1. FEMARA [Suspect]
     Indication: BREAST CANCER METASTATIC
     Dosage: 2.5 MG, QD
     Route: 048
     Dates: start: 20050401
  2. DIFFU K [Concomitant]
  3. NOCTAMID [Concomitant]

REACTIONS (2)
  - INTESTINAL INFARCTION [None]
  - SURGERY [None]
